FAERS Safety Report 17676518 (Version 1)
Quarter: 2020Q2

REPORT INFORMATION
  Report Type: Spontaneous
  Country: US (occurrence: US)
  Receive Date: 20200416
  Receipt Date: 20200416
  Transmission Date: 20200714
  Serious: No
  Sender: FDA-Public Use
  Company Number: US-ARRAY-2020-07742

PATIENT

DRUGS (2)
  1. BRAFTOVI [Suspect]
     Active Substance: ENCORAFENIB
     Indication: COLON CANCER
     Dosage: 300 MG QD
     Route: 048
  2. ELIQUIS [Concomitant]
     Active Substance: APIXABAN
     Indication: PRODUCT USED FOR UNKNOWN INDICATION

REACTIONS (5)
  - Rash erythematous [Unknown]
  - Acne [Unknown]
  - Expired product administered [Unknown]
  - Bone pain [Unknown]
  - Product use in unapproved indication [Unknown]
